FAERS Safety Report 5992807-4 (Version None)
Quarter: 2008Q4

REPORT INFORMATION
  Report Type: 
  Country: None (occurrence: None)
  Receive Date: 20081203
  Receipt Date: 20081110
  Transmission Date: 20090506
  Serious: Yes (Other)
  Sender: FDA-Public Use
  Company Number: ZYD-AE-08-148

PATIENT
  Age: 48 Year
  Sex: Female

DRUGS (3)
  1. RIBAVIRIN [Suspect]
     Indication: HEPATITIS C VIRUS TEST
     Dosage: 1000MG - QD
     Dates: start: 20080920
  2. PEG-INTERFERON ALFA 2A (RO 25-8310) [Suspect]
     Indication: HEPATITIS C VIRUS TEST
     Dosage: 180 MCG WEEKLY
     Dates: start: 20080920
  3. OXYCONTIN [Concomitant]

REACTIONS (7)
  - DRY MOUTH [None]
  - INJECTION SITE RASH [None]
  - IRRITABILITY [None]
  - MEMORY IMPAIRMENT [None]
  - ORAL HERPES [None]
  - OROPHARYNGEAL PAIN [None]
  - PYREXIA [None]
